FAERS Safety Report 8294406-0 (Version None)
Quarter: 2012Q2

REPORT INFORMATION
  Report Type: 
  Country: None (occurrence: None)
  Receive Date: 20120418
  Receipt Date: 20050307
  Transmission Date: 20120825
  Serious: Yes (Hospitalization)
  Sender: FDA-Public Use
  Company Number: PHHY2005SG007148

PATIENT
  Sex: Female

DRUGS (6)
  1. URSODIOL [Concomitant]
     Dosage: 250 MG, UNK
  2. GLEEVEC [Suspect]
     Indication: CHRONIC MYELOID LEUKAEMIA
     Dosage: 400 MG, DAILY
     Dates: start: 20031105
  3. VITAMIN B6 [Concomitant]
     Dosage: 200 MG, UNK
  4. VITAMIN B1 TAB [Concomitant]
     Dosage: 100 MG, UNK
  5. VALDECOXIB [Concomitant]
     Dosage: 20 MG, UNK
  6. VITAMIN B-12 [Concomitant]
     Dosage: 200 UG, UNK

REACTIONS (1)
  - MENTAL DISORDER [None]
